FAERS Safety Report 4808331-8 (Version None)
Quarter: 2005Q4

REPORT INFORMATION
  Report Type: 
  Country: None (occurrence: None)
  Receive Date: 20051025
  Receipt Date: 20050823
  Transmission Date: 20060501
  Serious: Yes (Other)
  Sender: FDA-Public Use
  Company Number: 2005UW12475

PATIENT
  Age: 59 Year
  Sex: Male

DRUGS (4)
  1. SEROQUEL [Suspect]
     Route: 048
     Dates: start: 20040115
  2. SEROQUEL [Suspect]
     Route: 048
     Dates: start: 20050728
  3. VERAPAMIL [Concomitant]
  4. DIOVAN [Concomitant]

REACTIONS (1)
  - HYPOAESTHESIA ORAL [None]
